FAERS Safety Report 7861250-5 (Version None)
Quarter: 2011Q4

REPORT INFORMATION
  Report Type: 
  Country: None (occurrence: None)
  Receive Date: 20111027
  Receipt Date: 20111020
  Transmission Date: 20120403
  Serious: Yes (Hospitalization)
  Sender: FDA-Public Use
  Company Number: US-ABBOTT-11P-163-0867207-00

PATIENT
  Sex: Female
  Weight: 74.002 kg

DRUGS (6)
  1. ZEMPLAR [Suspect]
     Indication: PRODUCT USED FOR UNKNOWN INDICATION
     Route: 048
     Dates: start: 20110101, end: 20110101
  2. METOPROLOL TARTRATE [Concomitant]
     Indication: CARDIAC DISORDER
  3. AMLODIPINE [Concomitant]
     Indication: HYPERTENSION
     Dates: start: 20111001
  4. METOPROLOL TARTRATE [Concomitant]
     Indication: HYPERTENSION
  5. ALLOPURINOL [Concomitant]
     Indication: GOUT
  6. ZEMPLAR [Suspect]
     Dates: end: 20110101

REACTIONS (7)
  - BLOOD IRON DECREASED [None]
  - FLUID RETENTION [None]
  - HEADACHE [None]
  - BLOOD CREATINE INCREASED [None]
  - VOMITING [None]
  - RENAL FAILURE [None]
  - BLOOD CALCIUM INCREASED [None]
